FAERS Safety Report 5888848-8 (Version None)
Quarter: 2008Q3

REPORT INFORMATION
  Report Type: 
  Country: None (occurrence: None)
  Receive Date: 20080919
  Receipt Date: 20080909
  Transmission Date: 20090109
  Serious: Yes (Other)
  Sender: FDA-Public Use
  Company Number: PHBS2008US05679

PATIENT
  Age: 51 Year
  Sex: Female

DRUGS (6)
  1. LETROZOLE [Suspect]
     Indication: BREAST CANCER
     Dosage: UNK
  2. BEVACIZUMAB [Suspect]
     Dosage: 15 MG/KG, UNK
     Dates: start: 20061201, end: 20070501
  3. HORMONES NOS [Concomitant]
  4. PACLITAXEL [Concomitant]
     Indication: NEOPLASM RECURRENCE
  5. CAPECITABINE [Concomitant]
     Dosage: 1000 MG, BID
     Dates: start: 20061001
  6. CAPECITABINE [Concomitant]
     Dosage: 1500 MG AM AND 1000 MG PM
     Dates: start: 20061201

REACTIONS (8)
  - ACTINOMYCOSIS [None]
  - BONE DISORDER [None]
  - BONE TRIMMING [None]
  - CHEST WALL OPERATION [None]
  - INFLAMMATION [None]
  - JAW DISORDER [None]
  - NEOPLASM RECURRENCE [None]
  - OSTEONECROSIS [None]
